FAERS Safety Report 6773181-2 (Version None)
Quarter: 2010Q2

REPORT INFORMATION
  Report Type: 
  Country: None (occurrence: None)
  Receive Date: 20100616
  Receipt Date: 20100614
  Transmission Date: 20101027
  Serious: Yes (Other)
  Sender: FDA-Public Use
  Company Number: CHPA2010US09983

PATIENT
  Age: 79 Year
  Sex: Female
  Weight: 58.957 kg

DRUGS (1)
  1. EXCEDRIN (MIGRAINE) [Suspect]
     Indication: INSOMNIA
     Dosage: 1 DF, QD
     Route: 048
     Dates: start: 20100101

REACTIONS (2)
  - DEPRESSION [None]
  - INTENTIONAL DRUG MISUSE [None]
